FAERS Safety Report 9238082 (Version 1)
Quarter: 2013Q2

REPORT INFORMATION
  Report Type: Spontaneous
  Country: PH (occurrence: PH)
  Receive Date: 20130418
  Receipt Date: 20130418
  Transmission Date: 20140414
  Serious: Yes (Other)
  Sender: FDA-Public Use
  Company Number: PHHY2013PH029715

PATIENT
  Sex: Male
  Weight: 65 kg

DRUGS (6)
  1. GLIVEC [Suspect]
     Indication: CHRONIC MYELOID LEUKAEMIA
     Dosage: 400 MG, UNK
  2. LOSARTAN [Concomitant]
     Indication: ESSENTIAL HYPERTENSION
     Dosage: 50 MG, ONCE A DAY
     Route: 048
     Dates: start: 20100820
  3. METFORMIN [Concomitant]
     Indication: DIABETES MELLITUS
     Dosage: 500 MG, 3XDAY
     Route: 048
     Dates: start: 20100929
  4. GLIMEPIRIDE [Concomitant]
     Indication: DIABETES MELLITUS
     Dosage: 3 MG, OD
     Route: 048
     Dates: start: 20110819
  5. FENOFIBRATE [Concomitant]
     Indication: DYSLIPIDAEMIA
     Dosage: 200 MG,OD
     Route: 048
     Dates: start: 20130318
  6. SIMVASTATIN [Concomitant]
     Indication: DYSLIPIDAEMIA
     Dosage: 20 MG, OD
     Dates: start: 20130318

REACTIONS (7)
  - Nephrolithiasis [Not Recovered/Not Resolved]
  - Renal colic [Unknown]
  - Costovertebral angle tenderness [Unknown]
  - Haematuria [Unknown]
  - Prostatomegaly [Not Recovered/Not Resolved]
  - Cholelithiasis [Unknown]
  - Hepatic steatosis [Unknown]
